FAERS Safety Report 23948419 (Version 1)
Quarter: 2024Q2

REPORT INFORMATION
  Report Type: Report from Study
  Country: US (occurrence: US)
  Receive Date: 20240607
  Receipt Date: 20240607
  Transmission Date: 20240716
  Serious: Yes (Other)
  Sender: FDA-Public Use
  Company Number: US-ABBVIE-5787943

PATIENT
  Sex: Female

DRUGS (1)
  1. QULIPTA [Suspect]
     Active Substance: ATOGEPANT
     Indication: Product used for unknown indication
     Route: 048
     Dates: start: 20230402

REACTIONS (6)
  - Rib fracture [Recovering/Resolving]
  - Procedural pain [Recovering/Resolving]
  - Bronchitis [Recovering/Resolving]
  - Ligament rupture [Unknown]
  - Hip fracture [Unknown]
  - Fall [Unknown]
